FAERS Safety Report 6859444-0 (Version None)
Quarter: 2010Q3

REPORT INFORMATION
  Report Type: 
  Country: None (occurrence: None)
  Receive Date: 20100719
  Receipt Date: 20080229
  Transmission Date: 20110219
  Serious: No
  Sender: FDA-Public Use
  Company Number: US-PFIZER INC-2008021227

PATIENT
  Sex: Male
  Weight: 87.3 kg

DRUGS (3)
  1. CHANTIX [Suspect]
     Indication: SMOKING CESSATION THERAPY
     Dates: start: 20080112
  2. LOTREL [Concomitant]
  3. LIPITOR [Concomitant]

REACTIONS (2)
  - DRUG DOSE OMISSION [None]
  - SKIN DISCOLOURATION [None]
